FAERS Safety Report 5750795-X (Version None)
Quarter: 2008Q2

REPORT INFORMATION
  Report Type: 
  Country: None (occurrence: None)
  Receive Date: 20080528
  Receipt Date: 20080515
  Transmission Date: 20081010
  Serious: Yes (Hospitalization, Congenital Anomaly)
  Sender: FDA-Public Use
  Company Number: A0690840A

PATIENT
  Sex: Female
  Weight: 3.2 kg

DRUGS (6)
  1. PAXIL [Suspect]
     Indication: ANXIETY
     Dosage: 20MG PER DAY
     Dates: start: 20010401
  2. PAROXETINE HCL [Suspect]
     Indication: ANXIETY
  3. ANTI-NAUSEA DRUGS [Concomitant]
     Dates: start: 20040101
  4. PROMETHAZINE [Concomitant]
     Dates: start: 20040501, end: 20040601
  5. VITAMIN TAB [Concomitant]
     Dates: start: 20040101, end: 20050101
  6. FOLIC ACID [Concomitant]
     Dates: start: 20040101

REACTIONS (15)
  - ANOMALOUS PULMONARY VENOUS CONNECTION [None]
  - ATRIAL SEPTAL DEFECT [None]
  - CARDIAC FAILURE CONGESTIVE [None]
  - DRUG DEPENDENCE [None]
  - DRUG EXPOSURE DURING PREGNANCY [None]
  - FAILURE TO THRIVE [None]
  - INFLUENZA [None]
  - LUNG INFECTION [None]
  - PATENT DUCTUS ARTERIOSUS [None]
  - PULMONARY HYPERTENSION [None]
  - RESPIRATORY FAILURE [None]
  - SCAR [None]
  - SLEEP DISORDER [None]
  - SLEEP TERROR [None]
  - VENTRICULAR SEPTAL DEFECT [None]
